FAERS Safety Report 8914942 (Version 2)
Quarter: 2012Q4

REPORT INFORMATION
  Report Type: 
  Country: US (occurrence: US)
  Receive Date: 20121116
  Receipt Date: 20121212
  Transmission Date: 20130627
  Serious: Yes (Hospitalization)
  Sender: FDA-Public Use
  Company Number: US-BAXTER-2012BAX023640

PATIENT
  Age: 1 Year
  Sex: Male

DRUGS (1)
  1. DIANEAL PD2 [Suspect]
     Indication: PERITONEAL DIALYSIS
     Route: 033
     Dates: start: 20121004

REACTIONS (5)
  - Klebsiella infection [Recovered/Resolved]
  - Catheter site infection [Recovered/Resolved]
  - Streptococcal infection [Recovered/Resolved]
  - Asthma [Recovered/Resolved]
  - Respiratory disorder [Recovered/Resolved]
